FAERS Safety Report 24350692 (Version 1)
Quarter: 2024Q3

REPORT INFORMATION
  Report Type: Spontaneous
  Country: BA (occurrence: BA)
  Receive Date: 20240923
  Receipt Date: 20240923
  Transmission Date: 20241016
  Serious: No
  Sender: ROCHE
  Company Number: BA-ROCHE-3523370

PATIENT
  Age: 55 Year
  Sex: Female

DRUGS (3)
  1. TRASTUZUMAB [Suspect]
     Active Substance: TRASTUZUMAB
     Indication: Salivary gland cancer
     Dosage: FOR 6 WEEKS FOLLOWED BY 4 CYCLES OF THC EVERY 3 WEEKS
     Route: 042
  2. PACLITAXEL [Concomitant]
     Active Substance: PACLITAXEL
     Indication: Salivary gland cancer
  3. CARBOPLATIN [Concomitant]
     Active Substance: CARBOPLATIN
     Indication: Salivary gland cancer
     Dosage: AUC 1.5

REACTIONS (2)
  - Off label use [Unknown]
  - No adverse event [Unknown]
